FAERS Safety Report 23196899 (Version 1)
Quarter: 2023Q4

REPORT INFORMATION
  Report Type: Report from Study
  Country: IT (occurrence: None)
  Receive Date: 20231117
  Receipt Date: 20231117
  Transmission Date: 20240110
  Serious: Yes (Death)
  Sender: FDA-Public Use
  Company Number: 2023A259758

PATIENT

DRUGS (1)
  1. IMFINZI [Suspect]
     Active Substance: DURVALUMAB
     Indication: Biliary tract disorder
     Dosage: 12 VIALS LOT:485/23 EXP 09/2025 AND VIALS LOT:353/23N EXP 09/2025
     Route: 042

REACTIONS (1)
  - Death [Fatal]
